FAERS Safety Report 22134601 (Version 1)
Quarter: 2023Q1

REPORT INFORMATION
  Report Type: Spontaneous
  Country: US (occurrence: US)
  Receive Date: 20230324
  Receipt Date: 20230324
  Transmission Date: 20230417
  Serious: No
  Sender: FDA-Public Use
  Company Number: US-GSK-US2023040428

PATIENT
  Age: 35 Year
  Sex: Male

DRUGS (2)
  1. NUCALA [Suspect]
     Active Substance: MEPOLIZUMAB
     Indication: Asthma
     Dosage: UNK, Z 1 INJECTION PER MONTH
     Dates: end: 2022
  2. ALBUTEROL [Concomitant]
     Active Substance: ALBUTEROL
     Indication: Asthma
     Dosage: UNK(TAKEN BEFORE NUCALA AND AS NEEDED)

REACTIONS (3)
  - Psoriasis [Recovering/Resolving]
  - Rash macular [Unknown]
  - Skin striae [Unknown]

NARRATIVE: CASE EVENT DATE: 20221215
